FAERS Safety Report 12287663 (Version 2)
Quarter: 2016Q2

REPORT INFORMATION
  Report Type: Spontaneous
  Country: GR (occurrence: GR)
  Receive Date: 20160420
  Receipt Date: 20160512
  Transmission Date: 20160815
  Serious: Yes (Other)
  Sender: FDA-Public Use
  Company Number: GR-SA-2016SA074736

PATIENT
  Age: 34 Year
  Sex: Female

DRUGS (1)
  1. ALEMTUZUMAB [Suspect]
     Active Substance: ALEMTUZUMAB
     Indication: RELAPSING-REMITTING MULTIPLE SCLEROSIS
     Dosage: ADMINISTRED FOR 5 CONSECUTATIVE DYAS PER CYCLE.
     Route: 042
     Dates: start: 201508

REACTIONS (2)
  - Multiple sclerosis [Unknown]
  - Disease progression [Unknown]

NARRATIVE: CASE EVENT DATE: 20160411
